FAERS Safety Report 8885725 (Version 1)
Quarter: 2012Q4

REPORT INFORMATION
  Report Type: Report from Study
  Country: GB (occurrence: GB)
  Receive Date: 20121102
  Receipt Date: 20121102
  Transmission Date: 20130627
  Serious: Yes (Other)
  Sender: FDA-Public Use
  Company Number: GB-AMGEN-GBRCT2012069691

PATIENT
  Age: 13 Year
  Sex: Male
  Weight: 43.5 kg

DRUGS (3)
  1. ETANERCEPT [Suspect]
     Indication: PRODUCT USED FOR UNKNOWN INDICATION
     Dosage: 25 mg, qwk
     Route: 058
     Dates: start: 20120112
  2. ETANERCEPT [Suspect]
     Dosage: 50 mg, qwk
     Route: 058
     Dates: start: 20120628
  3. PIROXICAM [Concomitant]
     Dosage: 20 mg, 1x/day
     Route: 048
     Dates: start: 20120601

REACTIONS (1)
  - Juvenile idiopathic arthritis [Not Recovered/Not Resolved]
